FAERS Safety Report 5107124-4 (Version None)
Quarter: 2006Q3

REPORT INFORMATION
  Report Type: 
  Country: None (occurrence: None)
  Receive Date: 20060913
  Receipt Date: 20060901
  Transmission Date: 20061208
  Serious: Yes (Other)
  Sender: FDA-Public Use
  Company Number: 2006-DE-04637GD

PATIENT
  Age: 37 Year
  Sex: Male

DRUGS (3)
  1. SERTRALINE [Suspect]
     Indication: MAJOR DEPRESSION
     Dosage: 150 MG
  2. MODAFINIL [Suspect]
     Indication: FATIGUE
     Dosage: SEE
  3. MODAFINIL [Suspect]
     Indication: SOMNOLENCE
     Dosage: SEE

REACTIONS (3)
  - CONDITION AGGRAVATED [None]
  - LEUKOPENIA [None]
  - NEUTROPENIA [None]
